FAERS Safety Report 25037464 (Version 1)
Quarter: 2025Q1

REPORT INFORMATION
  Report Type: Spontaneous
  Country: US (occurrence: US)
  Receive Date: 20250304
  Receipt Date: 20250304
  Transmission Date: 20250409
  Serious: No
  Sender: ROCHE
  Company Number: US-ROCHE-10000217217

PATIENT
  Age: 15 Year
  Sex: Female
  Weight: 52.16 kg

DRUGS (3)
  1. XOLAIR PFS [Suspect]
     Active Substance: OMALIZUMAB
     Indication: Urticaria aquagenic
     Route: 058
     Dates: start: 202410
  2. XOLAIR PFS [Suspect]
     Active Substance: OMALIZUMAB
     Indication: Urticaria
  3. JUNEL [Concomitant]
     Active Substance: ETHINYL ESTRADIOL\NORETHINDRONE ACETATE
     Indication: Menstrual disorder
     Dosage: PERIODS

REACTIONS (6)
  - Off label use [Unknown]
  - Product dose omission issue [Unknown]
  - Product dispensing error [Unknown]
  - Device defective [Unknown]
  - No adverse event [Unknown]
  - Syringe issue [Unknown]

NARRATIVE: CASE EVENT DATE: 20241001
